FAERS Safety Report 5669066-5 (Version None)
Quarter: 2008Q1

REPORT INFORMATION
  Report Type: 
  Country: None (occurrence: None)
  Receive Date: 20080317
  Receipt Date: 20080305
  Transmission Date: 20080703
  Serious: Yes (Hospitalization)
  Sender: FDA-Public Use
  Company Number: JP-NOVOPROD-272980

PATIENT
  Age: 73 Year
  Sex: Female
  Weight: 43 kg

DRUGS (9)
  1. NOVOLIN N [Suspect]
     Indication: TYPE 2 DIABETES MELLITUS
     Dosage: 70 IU, QD
     Route: 058
     Dates: start: 20061001
  2. NOVOLIN R [Suspect]
     Indication: TYPE 2 DIABETES MELLITUS
     Dosage: UNK, UNK
     Route: 058
  3. WARFARIN SODIUM [Concomitant]
     Indication: CARDIAC FAILURE CHRONIC
     Dosage: 1 MG, UNK
     Route: 048
  4. LANIRAPID [Concomitant]
     Indication: CARDIAC FAILURE CHRONIC
     Dosage: .05 MG, UNK
     Route: 048
  5. NOIDOUBLE [Concomitant]
     Indication: CARDIAC FAILURE CHRONIC
     Dosage: 25 MG, UNK
     Route: 048
  6. DIART [Concomitant]
     Indication: CARDIAC FAILURE CHRONIC
     Dosage: 30 MG, UNK
     Route: 048
  7. SOLUTIONS FOR PARENTERAL NUTRITION [Concomitant]
     Dosage: 1200 KCAL, QD
  8. SOLUTIONS FOR PARENTERAL NUTRITION [Concomitant]
     Dosage: 600 KCAL QD
  9. SOLUTIONS FOR PARENTERAL NUTRITION [Concomitant]
     Dosage: 1200 KCAL, QD

REACTIONS (3)
  - DECUBITUS ULCER [None]
  - DIABETIC HYPEROSMOLAR COMA [None]
  - INJECTION SITE INDURATION [None]
